FAERS Safety Report 16931567 (Version 1)
Quarter: 2019Q4

REPORT INFORMATION
  Report Type: Spontaneous
  Country: US (occurrence: US)
  Receive Date: 20191017
  Receipt Date: 20191017
  Transmission Date: 20200122
  Serious: Yes (Hospitalization)
  Sender: FDA-Public Use
  Company Number: None

PATIENT
  Age: 75 Year
  Sex: Female

DRUGS (19)
  1. ENBREL [Suspect]
     Active Substance: ETANERCEPT
     Indication: PSORIASIS
     Dosage: ?          OTHER FREQUENCY:WEEKLY;?
     Route: 058
     Dates: start: 20180129
  2. ALLOPURINOL. [Concomitant]
     Active Substance: ALLOPURINOL
  3. PROCHLORPER [Concomitant]
  4. VITAMIN D [Concomitant]
     Active Substance: VITAMIN D NOS
  5. DICYCLOMINE [Concomitant]
     Active Substance: DICYCLOMINE HYDROCHLORIDE
  6. LATANOPROST SOL [Concomitant]
  7. LIDOCAINE PAD [Concomitant]
  8. METOPROL TAR [Concomitant]
  9. CALCITRIOL. [Concomitant]
     Active Substance: CALCITRIOL
  10. SUCRALFATE. [Concomitant]
     Active Substance: SUCRALFATE
  11. TORSEMIDE. [Concomitant]
     Active Substance: TORSEMIDE
  12. AMLODIPINE [Concomitant]
     Active Substance: AMLODIPINE BESYLATE
  13. DIAZEPAM. [Concomitant]
     Active Substance: DIAZEPAM
  14. DORZOLAMIDE SOL [Concomitant]
  15. BETHANECHOL [Concomitant]
     Active Substance: BETHANECHOL
  16. MEGESTROL AC SUS [Concomitant]
  17. PANTOPRAZOLE [Concomitant]
     Active Substance: PANTOPRAZOLE
  18. SODIUM BICAR [Concomitant]
  19. RANITIDINE. [Concomitant]
     Active Substance: RANITIDINE

REACTIONS (1)
  - Pancreatitis acute [None]

NARRATIVE: CASE EVENT DATE: 20191004
